FAERS Safety Report 13966490 (Version 2)
Quarter: 2017Q4

REPORT INFORMATION
  Report Type: Spontaneous
  Country: GT (occurrence: GT)
  Receive Date: 20170913
  Receipt Date: 20171003
  Transmission Date: 20180320
  Serious: Yes (Other)
  Sender: FDA-Public Use
  Company Number: PHHY2017GT133671

PATIENT
  Age: 37 Year
  Sex: Female

DRUGS (4)
  1. METOPROLOL. [Concomitant]
     Active Substance: METOPROLOL
     Indication: PRODUCT USED FOR UNKNOWN INDICATION
     Dosage: 100 MG, ? EVERY 12 HOURS
     Route: 065
  2. SCAPHO [Suspect]
     Active Substance: SECUKINUMAB
     Indication: SPONDYLOARTHROPATHY
     Dosage: UNK
     Route: 065
     Dates: start: 20170712
  3. SCAPHO [Suspect]
     Active Substance: SECUKINUMAB
     Dosage: UNK
     Route: 065
     Dates: start: 20170901
  4. SYNTHROID [Concomitant]
     Active Substance: LEVOTHYROXINE SODIUM
     Indication: PRODUCT USED FOR UNKNOWN INDICATION
     Dosage: 50 UG, 1 FROM MONDAY TO THURSDAY AND 2 FROM FRIDAY TO SATURDAY
     Route: 065

REACTIONS (7)
  - Candida infection [Unknown]
  - Escherichia urinary tract infection [Unknown]
  - Haematuria [Unknown]
  - Cystitis [Unknown]
  - General physical health deterioration [Unknown]
  - Tonsillitis bacterial [Recovering/Resolving]
  - Tonsillar exudate [Recovering/Resolving]

NARRATIVE: CASE EVENT DATE: 20170901
